FAERS Safety Report 4920858-7 (Version None)
Quarter: 2006Q1

REPORT INFORMATION
  Report Type: 
  Country: None (occurrence: None)
  Receive Date: 20060217
  Receipt Date: 20060208
  Transmission Date: 20060701
  Serious: No
  Sender: FDA-Public Use
  Company Number: RS005760-CDN

PATIENT
  Sex: Male

DRUGS (1)
  1. RABEPRAZOLE SODIUM [Suspect]
     Indication: GASTRITIS
     Dosage: 20 MG, ORAL
     Route: 048
     Dates: start: 20060111, end: 20060116

REACTIONS (5)
  - FAECES DISCOLOURED [None]
  - GASTROENTERITIS NORWALK VIRUS [None]
  - HYPERAESTHESIA [None]
  - IRRITABILITY [None]
  - MOVEMENT DISORDER [None]
